FAERS Safety Report 20093925 (Version 1)
Quarter: 2021Q4

REPORT INFORMATION
  Report Type: Spontaneous
  Country: US (occurrence: None)
  Receive Date: 20211121
  Receipt Date: 20211121
  Transmission Date: 20220303
  Serious: No
  Sender: FDA-Public Use
  Company Number: 2021A800921

PATIENT
  Sex: Female

DRUGS (1)
  1. CRESTOR [Suspect]
     Active Substance: ROSUVASTATIN CALCIUM
     Route: 048
     Dates: end: 20211102

REACTIONS (4)
  - Faeces discoloured [Unknown]
  - Sweat discolouration [Unknown]
  - Chromaturia [Unknown]
  - Xanthopsia [Unknown]
